FAERS Safety Report 14060975 (Version 1)
Quarter: 2017Q4

REPORT INFORMATION
  Report Type: Spontaneous
  Country: US (occurrence: US)
  Receive Date: 20171007
  Receipt Date: 20171007
  Transmission Date: 20180321
  Serious: No
  Sender: FDA-Public Use
  Company Number: US-009507513-1710USA001404

PATIENT
  Age: 65 Year
  Sex: Male

DRUGS (1)
  1. SINEMET [Suspect]
     Active Substance: CARBIDOPA\LEVODOPA
     Dosage: UNK, STRENGTH: 25 MG/100 MG
     Route: 048

REACTIONS (2)
  - Nervousness [Unknown]
  - Dizziness [Unknown]
